FAERS Safety Report 9998955 (Version 1)
Quarter: 2014Q1

REPORT INFORMATION
  Report Type: Spontaneous
  Country: US (occurrence: None)
  Receive Date: 20140311
  Receipt Date: 20140311
  Transmission Date: 20141002
  Serious: Yes (Other)
  Sender: FDA-Public Use
  Company Number: None

PATIENT
  Age: 34 Year
  Sex: Female
  Weight: 58.51 kg

DRUGS (2)
  1. ESCITALOPRAM OXALATE [Suspect]
     Indication: DEPRESSION
     Dates: start: 201309, end: 201312
  2. ESCITALOPRAM OXALATE [Suspect]
     Indication: ANXIETY
     Dates: start: 201309, end: 201312

REACTIONS (5)
  - Condition aggravated [None]
  - Depression [None]
  - Anxiety [None]
  - Drug ineffective [None]
  - Activities of daily living impaired [None]
